FAERS Safety Report 9634567 (Version 1)
Quarter: 2013Q4

REPORT INFORMATION
  Report Type: Spontaneous
  Country: US (occurrence: US)
  Receive Date: 20131021
  Receipt Date: 20131021
  Transmission Date: 20140711
  Serious: No
  Sender: FDA-Public Use
  Company Number: US-PURDUE-USA-2013-0101256

PATIENT
  Sex: Female

DRUGS (1)
  1. BUTRANS [Suspect]
     Indication: PAIN
     Dosage: 15 MCG/HR (10MCG/HR AND 5MCG/HR SIMULTANEOUSLY, WEEKLY
     Route: 062
     Dates: start: 201210, end: 201210

REACTIONS (5)
  - Extra dose administered [Recovered/Resolved]
  - Drug administered at inappropriate site [Recovered/Resolved]
  - Application site rash [Recovered/Resolved]
  - Application site inflammation [Recovered/Resolved]
  - Application site erythema [Recovered/Resolved]
